FAERS Safety Report 15657058 (Version 1)
Quarter: 2018Q4

REPORT INFORMATION
  Report Type: Report from Study
  Country: US (occurrence: US)
  Receive Date: 20181126
  Receipt Date: 20181126
  Transmission Date: 20190205
  Serious: Yes (Hospitalization)
  Sender: FDA-Public Use
  Company Number: US-SAKK-2018SA165836AA

PATIENT
  Age: 68 Year
  Sex: Male
  Weight: 90.3 kg

DRUGS (23)
  1. SAPANISERTIB [Suspect]
     Active Substance: SAPANISERTIB
     Dosage: 3 MG, UNK
     Route: 048
     Dates: start: 20180526
  2. CLONIDINE HYDROCHLORIDE. [Concomitant]
     Active Substance: CLONIDINE HYDROCHLORIDE
  3. HYDROCHLOROTHIAZIDE. [Concomitant]
     Active Substance: HYDROCHLOROTHIAZIDE
  4. SULFASALAZINE. [Concomitant]
     Active Substance: SULFASALAZINE
  5. ASPIRIN (E.C.) [Concomitant]
     Active Substance: ASPIRIN
  6. PRAVASTATIN. [Concomitant]
     Active Substance: PRAVASTATIN
  7. MULTIVITAMIN + MINERAL [Concomitant]
  8. SPIRONOLACTONE. [Concomitant]
     Active Substance: SPIRONOLACTONE
  9. FATTY ACIDS NOS [Concomitant]
  10. METHOCARBAMOL. [Concomitant]
     Active Substance: METHOCARBAMOL
  11. VITAMIN D3 [Concomitant]
     Active Substance: CHOLECALCIFEROL
  12. CELECOXIB. [Concomitant]
     Active Substance: CELECOXIB
  13. DESMOPRESSIN [Concomitant]
     Active Substance: DESMOPRESSIN
  14. AFLIBERCEPT [Suspect]
     Active Substance: AFLIBERCEPT
     Dosage: UNK UNK, QCY
     Route: 041
  15. CARVEDILOL. [Concomitant]
     Active Substance: CARVEDILOL
  16. DOCUSATE SODIUM. [Concomitant]
     Active Substance: DOCUSATE SODIUM
  17. TRAMADOL. [Concomitant]
     Active Substance: TRAMADOL
  18. ACETAMINOPHEN. [Concomitant]
     Active Substance: ACETAMINOPHEN
  19. AFLIBERCEPT [Suspect]
     Active Substance: AFLIBERCEPT
     Dosage: 3 UNK
     Route: 041
     Dates: start: 20180523, end: 20180523
  20. TYNOL [Concomitant]
  21. LEUPROLIDE ACE [Concomitant]
     Active Substance: LEUPROLIDE ACETATE
  22. NIFEDIPINE. [Concomitant]
     Active Substance: NIFEDIPINE
  23. NITROGLYCERIN. [Concomitant]
     Active Substance: NITROGLYCERIN

REACTIONS (1)
  - Gastritis [Recovering/Resolving]

NARRATIVE: CASE EVENT DATE: 20180531
